FAERS Safety Report 8921164 (Version 1)
Quarter: 2012Q4

REPORT INFORMATION
  Report Type: 
  Country: FR (occurrence: FR)
  Receive Date: 20121121
  Receipt Date: 20121121
  Transmission Date: 20130627
  Serious: Yes (Death, Hospitalization)
  Sender: FDA-Public Use
  Company Number: FR-BAXTER-2012BAX023922

PATIENT
  Age: 48 Year
  Sex: Female

DRUGS (14)
  1. HOLOXAN [Suspect]
     Indication: NON-HODGKIN^S LYMPHOMA
     Route: 042
     Dates: start: 20120823, end: 20120824
  2. HOLOXAN [Suspect]
     Route: 042
     Dates: start: 20120828, end: 20120828
  3. UROMITEXAN [Suspect]
     Indication: SECONDARY PREVENTION
     Route: 042
     Dates: start: 20120823, end: 20120824
  4. UROMITEXAN [Suspect]
     Route: 042
     Dates: start: 20120828, end: 20120828
  5. SOLUMEDROL(METHYLPREDNISOLONE SODIUM SUCCINATE) INFUSION [Suspect]
     Indication: NON-HODGKIN^S LYMPHOMA
     Route: 042
     Dates: start: 20120823, end: 20120824
  6. SOLUMEDROL(METHYLPREDNISOLONE SODIUM SUCCINATE) INFUSION [Suspect]
     Route: 042
     Dates: start: 20120828, end: 20120828
  7. PRIMPERAN [Suspect]
     Indication: SECONDARY PREVENTION
     Route: 042
     Dates: start: 20120823, end: 20120824
  8. PRIMPERAN [Suspect]
     Route: 042
     Dates: start: 20120828, end: 20120828
  9. VINORELBINE [Suspect]
     Indication: NON-HODGKIN^S LYMPHOMA
     Route: 042
     Dates: start: 20120823, end: 20120823
  10. GEMCITABINE [Suspect]
     Indication: NON-HODGKIN^S LYMPHOMA
     Route: 042
     Dates: start: 20120823, end: 20120823
  11. ZOPHREN [Suspect]
     Indication: SECONDARY PREVENTION
     Route: 042
     Dates: start: 20120823, end: 20120824
  12. ZOPHREN [Suspect]
     Route: 042
     Dates: start: 20120828, end: 20120828
  13. NEURONTIN [Concomitant]
     Indication: NEUROGENIC PAIN
     Route: 048
  14. MORPHINE HYDROCHLORIDE [Concomitant]
     Indication: CANCER PAIN
     Route: 042

REACTIONS (2)
  - Sepsis [Fatal]
  - Encephalopathy [Recovered/Resolved with Sequelae]
